FAERS Safety Report 23290083 (Version 1)
Quarter: 2023Q4

REPORT INFORMATION
  Report Type: Report from Study
  Country: US (occurrence: US)
  Receive Date: 20231212
  Receipt Date: 20231212
  Transmission Date: 20240110
  Serious: Yes (Hospitalization)
  Sender: FDA-Public Use
  Company Number: US-ELI_LILLY_AND_COMPANY-US202311001394

PATIENT
  Sex: Female

DRUGS (2)
  1. VERZENIO [Suspect]
     Active Substance: ABEMACICLIB
     Indication: Breast cancer
     Dosage: 100 MG, BID
     Route: 048
     Dates: end: 20231125
  2. VERZENIO [Suspect]
     Active Substance: ABEMACICLIB
     Dosage: UNK UNK, UNKNOWN
     Route: 065
     Dates: start: 20231026

REACTIONS (6)
  - Gastrointestinal haemorrhage [Unknown]
  - Haemoglobin decreased [Unknown]
  - Faeces hard [Unknown]
  - Constipation [Unknown]
  - Vomiting [Unknown]
  - Nausea [Unknown]
